FAERS Safety Report 5712989-9 (Version None)
Quarter: 2008Q2

REPORT INFORMATION
  Report Type: 
  Country: None (occurrence: None)
  Receive Date: 20080422
  Receipt Date: 20080417
  Transmission Date: 20081010
  Serious: Yes (Hospitalization, Other)
  Sender: FDA-Public Use
  Company Number: ITWYE597319APR05

PATIENT
  Sex: Female
  Weight: 64 kg

DRUGS (31)
  1. SIROLIMUS [Suspect]
     Indication: PROPHYLAXIS AGAINST TRANSPLANT REJECTION
     Route: 048
     Dates: start: 20050102, end: 20050102
  2. SIROLIMUS [Suspect]
     Route: 048
     Dates: start: 20050103, end: 20050202
  3. SIROLIMUS [Suspect]
     Route: 048
     Dates: start: 20050203, end: 20050203
  4. SIROLIMUS [Suspect]
     Route: 048
     Dates: start: 20050204, end: 20050216
  5. SIROLIMUS [Suspect]
     Route: 048
     Dates: start: 20050217, end: 20050323
  6. SIROLIMUS [Suspect]
     Route: 048
     Dates: start: 20050324, end: 20050421
  7. SIROLIMUS [Suspect]
     Route: 048
     Dates: start: 20050422, end: 20050422
  8. SIROLIMUS [Suspect]
     Route: 048
     Dates: start: 20050423, end: 20050506
  9. SIROLIMUS [Suspect]
     Dates: start: 20050507, end: 20050629
  10. SULFAMETHOXAZOLE AND TRIMETHOPRIM [Concomitant]
     Dosage: 800/160 MG DAILY
     Dates: start: 20050104
  11. VENLAFAXINE HYDROCHLORIDE [Concomitant]
     Dosage: NOT PROVIDED
     Dates: start: 20020630, end: 20050331
  12. VENLAFAXINE HYDROCHLORIDE [Concomitant]
     Dosage: NOT PROVIDED
     Dates: start: 20050512
  13. LORAZEPAM [Concomitant]
     Dates: start: 20020630
  14. DOXAZOSIN MESYLATE [Concomitant]
     Dates: start: 20050101
  15. FUROSEMIDE [Concomitant]
     Dates: start: 20050310
  16. BASILIXIMAB [Concomitant]
     Dates: start: 20050102, end: 20050102
  17. BASILIXIMAB [Concomitant]
     Dates: start: 20050106, end: 20050106
  18. METHYLPREDNISOLONE [Concomitant]
     Route: 042
     Dates: start: 20050102, end: 20050102
  19. METHYLPREDNISOLONE [Concomitant]
     Route: 042
     Dates: start: 20050103, end: 20050103
  20. METHYLPREDNISOLONE [Concomitant]
     Route: 042
     Dates: start: 20050104, end: 20050104
  21. PREDNISONE [Concomitant]
     Route: 048
     Dates: start: 20050105, end: 20050116
  22. PREDNISONE [Concomitant]
     Route: 048
     Dates: start: 20050117, end: 20050130
  23. PREDNISONE [Concomitant]
     Route: 048
     Dates: start: 20050131, end: 20050213
  24. PREDNISONE [Concomitant]
     Route: 048
     Dates: start: 20050214, end: 20050406
  25. PREDNISONE [Concomitant]
     Route: 048
     Dates: start: 20050407, end: 20050421
  26. PREDNISONE [Concomitant]
     Route: 048
     Dates: start: 20050422
  27. CYCLOSPORINE [Concomitant]
     Dosage: 9 MG/KG/D, FURTHER ASSESSMENT BASED ON BLOOD LEVEL
     Dates: start: 20050101, end: 20050101
  28. CYCLOSPORINE [Concomitant]
     Dosage: UNSPECIFIED LOW DOSE
     Dates: start: 20050101, end: 20050101
  29. CYCLOSPORINE [Concomitant]
     Dosage: UUNSPECIFIED
     Dates: start: 20050101
  30. RANITIDINE [Concomitant]
     Dates: start: 20050102
  31. FLUVASTATIN [Concomitant]
     Dates: start: 20050119

REACTIONS (8)
  - ASCITES [None]
  - DRUG TOXICITY [None]
  - HYPERCHOLESTEROLAEMIA [None]
  - KIDNEY TRANSPLANT REJECTION [None]
  - LYMPHOCELE [None]
  - LYMPHOEDEMA [None]
  - PERICARDIAL EFFUSION [None]
  - PLEURAL EFFUSION [None]
